FAERS Safety Report 15769201 (Version 1)
Quarter: 2018Q4

REPORT INFORMATION
  Report Type: Spontaneous
  Country: US (occurrence: US)
  Receive Date: 20181228
  Receipt Date: 20181228
  Transmission Date: 20190205
  Serious: Yes (Other)
  Sender: FDA-Public Use
  Company Number: US-JNJFOC-20181138940

PATIENT
  Sex: Female

DRUGS (1)
  1. IMBRUVICA [Suspect]
     Active Substance: IBRUTINIB
     Indication: MANTLE CELL LYMPHOMA
     Route: 065

REACTIONS (28)
  - Atrial fibrillation [Not Recovered/Not Resolved]
  - Breast mass [Unknown]
  - Headache [Not Recovered/Not Resolved]
  - Hypogammaglobulinaemia [Not Recovered/Not Resolved]
  - Herpes zoster [Not Recovered/Not Resolved]
  - Back pain [Not Recovered/Not Resolved]
  - Anxiety [Not Recovered/Not Resolved]
  - Leukopenia [Unknown]
  - Deep vein thrombosis [Not Recovered/Not Resolved]
  - Neuropathy peripheral [Unknown]
  - Candida infection [Not Recovered/Not Resolved]
  - Anaemia [Not Recovered/Not Resolved]
  - Central nervous system lesion [Unknown]
  - Skin disorder [Not Recovered/Not Resolved]
  - Adenocarcinoma [Unknown]
  - Dyspnoea exertional [Not Recovered/Not Resolved]
  - Abdominal wall disorder [Unknown]
  - Diarrhoea [Not Recovered/Not Resolved]
  - Thrombocytopenia [Not Recovered/Not Resolved]
  - Adrenal adenoma [Not Recovered/Not Resolved]
  - Hypertension [Not Recovered/Not Resolved]
  - Bone pain [Unknown]
  - Pancytopenia [Unknown]
  - Hyperuricaemia [Not Recovered/Not Resolved]
  - Gastrooesophageal reflux disease [Not Recovered/Not Resolved]
  - Abdominal pain upper [Not Recovered/Not Resolved]
  - Fatigue [Not Recovered/Not Resolved]
  - Nausea [Not Recovered/Not Resolved]
